FAERS Safety Report 19077842 (Version 2)
Quarter: 2021Q2

REPORT INFORMATION
  Report Type: Spontaneous
  Country: GB (occurrence: GB)
  Receive Date: 20210331
  Receipt Date: 20210409
  Transmission Date: 20210717
  Serious: Yes (Other)
  Sender: FDA-Public Use
  Company Number: GB-ACCORD-221103

PATIENT
  Age: 27 Year
  Sex: Male

DRUGS (2)
  1. AMITRIPTYLINE [Suspect]
     Active Substance: AMITRIPTYLINE
     Indication: HEADACHE
     Dates: start: 20200101
  2. ASTRAZENECA COVID?19 VACCINE [Interacting]
     Active Substance: AZD-1222
     Indication: COVID-19 IMMUNISATION
     Dosage: DOSE 1
     Dates: start: 202103, end: 202103

REACTIONS (5)
  - Decreased appetite [Recovered/Resolved]
  - Migraine [Recovered/Resolved]
  - Eye pain [Not Recovered/Not Resolved]
  - Inhibitory drug interaction [Unknown]
  - Drug ineffective [Unknown]

NARRATIVE: CASE EVENT DATE: 20210313
